FAERS Safety Report 16204383 (Version 2)
Quarter: 2019Q2

REPORT INFORMATION
  Report Type: Report from Study
  Country: IL (occurrence: IL)
  Receive Date: 20190416
  Receipt Date: 20190423
  Transmission Date: 20190711
  Serious: Yes (Death, Hospitalization, Other)
  Sender: FDA-Public Use
  Company Number: PHHY2019IL084741

PATIENT
  Age: 73 Year
  Sex: Female

DRUGS (1)
  1. KISQALI [Suspect]
     Active Substance: RIBOCICLIB
     Indication: BREAST CANCER
     Dosage: 600 MG, QD
     Route: 048
     Dates: start: 20190326

REACTIONS (6)
  - Renal impairment [Recovering/Resolving]
  - Vomiting [Recovering/Resolving]
  - Ascites [Unknown]
  - Dehydration [Recovering/Resolving]
  - Concomitant disease aggravated [Unknown]
  - Death [Fatal]

NARRATIVE: CASE EVENT DATE: 20190331
